FAERS Safety Report 16135117 (Version 1)
Quarter: 2019Q1

REPORT INFORMATION
  Report Type: Spontaneous
  Country: GB (occurrence: GB)
  Receive Date: 20190329
  Receipt Date: 20190329
  Transmission Date: 20190418
  Serious: Yes (Other)
  Sender: FDA-Public Use
  Company Number: GB-MYLANLABS-2014S1013036

PATIENT
  Age: 66 Year
  Sex: Female
  Weight: 92.07 kg

DRUGS (7)
  1. CANDESARTAN. [Suspect]
     Active Substance: CANDESARTAN
     Indication: HYPERTENSION
     Dosage: 4 MILLIGRAM
     Route: 048
     Dates: start: 20120629
  2. CO-AMILOZIDE [Suspect]
     Active Substance: AMILORIDE HYDROCHLORIDE\HYDROCHLOROTHIAZIDE
     Dosage: 2.5MG/25MG
     Route: 048
     Dates: start: 20120519, end: 20121023
  3. FLUCLOXACILLIN [Concomitant]
     Active Substance: FLUCLOXACILLIN
     Dosage: 250 MILLIGRAM
     Dates: start: 201208
  4. QVAR [Concomitant]
     Active Substance: BECLOMETHASONE DIPROPIONATE
     Dosage: UNK
     Dates: start: 201201
  5. CLOTRIMAZOLE. [Concomitant]
     Active Substance: CLOTRIMAZOLE
     Dosage: UNK
     Dates: start: 201209
  6. CO-AMILOZIDE [Suspect]
     Active Substance: AMILORIDE HYDROCHLORIDE\HYDROCHLOROTHIAZIDE
     Indication: HYPERTENSION
     Dosage: 2 MILLIGRAM
     Route: 048
     Dates: start: 20120519, end: 20121023
  7. CANDESARTAN. [Suspect]
     Active Substance: CANDESARTAN
     Dosage: 2 MILLIGRAM
     Route: 048
     Dates: start: 20120629, end: 20131127

REACTIONS (12)
  - Decreased appetite [Recovered/Resolved with Sequelae]
  - Heart rate irregular [Recovered/Resolved with Sequelae]
  - Arthralgia [Recovered/Resolved with Sequelae]
  - Incontinence [Not Recovered/Not Resolved]
  - Muscular weakness [Recovered/Resolved with Sequelae]
  - Candida infection [Recovered/Resolved with Sequelae]
  - Hyperglycaemia [Recovered/Resolved with Sequelae]
  - Fatigue [Recovered/Resolved with Sequelae]
  - Pollakiuria [Not Recovered/Not Resolved]
  - Hypersomnia [Recovered/Resolved with Sequelae]
  - Pruritus genital [Recovered/Resolved with Sequelae]
  - Pain in extremity [Recovered/Resolved with Sequelae]

NARRATIVE: CASE EVENT DATE: 20120527
